FAERS Safety Report 21472491 (Version 1)
Quarter: 2022Q4

REPORT INFORMATION
  Report Type: Spontaneous
  Country: FR (occurrence: FR)
  Receive Date: 20221018
  Receipt Date: 20221018
  Transmission Date: 20230112
  Serious: Yes (Life-Threatening, Other)
  Sender: FDA-Public Use
  Company Number: None

PATIENT
  Age: 30 Year
  Sex: Male
  Weight: 70 kg

DRUGS (2)
  1. ENOXAPARIN SODIUM [Interacting]
     Active Substance: ENOXAPARIN SODIUM
     Indication: Thrombosis prophylaxis
     Dosage: 4000 IU
     Route: 058
     Dates: start: 20220912, end: 20220915
  2. KETOPROFEN [Interacting]
     Active Substance: KETOPROFEN
     Indication: Patella fracture
     Dosage: 200 MG
     Route: 048
     Dates: start: 20220912, end: 20220915

REACTIONS (4)
  - Gastric ulcer [Recovering/Resolving]
  - Drug interaction [Recovered/Resolved]
  - Melaena [Recovered/Resolved]
  - Shock haemorrhagic [Recovered/Resolved]

NARRATIVE: CASE EVENT DATE: 20220915
